FAERS Safety Report 17346065 (Version 1)
Quarter: 2020Q1

REPORT INFORMATION
  Report Type: Spontaneous
  Country: US (occurrence: US)
  Receive Date: 20200114
  Receipt Date: 20200114
  Transmission Date: 20200409
  Serious: Yes (Life-Threatening, Hospitalization, Other)
  Sender: FDA-Public Use
  Company Number: None

PATIENT
  Age: 63 Year
  Sex: Male
  Weight: 95.25 kg

DRUGS (1)
  1. VALSARTAN 160MG [Suspect]
     Active Substance: VALSARTAN
     Indication: HYPERTENSION
     Dosage: ?          OTHER FREQUENCY:1 DAY;?
     Route: 048

REACTIONS (2)
  - Recalled product administered [None]
  - Prostate cancer [None]

NARRATIVE: CASE EVENT DATE: 20190304
